FAERS Safety Report 15546102 (Version 1)
Quarter: 2018Q4

REPORT INFORMATION
  Report Type: Spontaneous
  Country: US (occurrence: US)
  Receive Date: 20181017
  Receipt Date: 20181017
  Transmission Date: 20190205
  Serious: Yes (Hospitalization)
  Sender: FDA-Public Use
  Company Number: None

PATIENT
  Age: 44 Year
  Sex: Female
  Weight: 100.61 kg

DRUGS (1)
  1. IMMUNE GLOBULIN (IVIG) [Suspect]
     Active Substance: HUMAN IMMUNOGLOBULIN G
     Indication: SARCOIDOSIS
     Dates: start: 20170626, end: 20180719

REACTIONS (2)
  - Meningitis aseptic [None]
  - Meningitis bacterial [None]

NARRATIVE: CASE EVENT DATE: 20180718
